FAERS Safety Report 8624928-1 (Version None)
Quarter: 2012Q3

REPORT INFORMATION
  Report Type: 
  Country: None (occurrence: None)
  Receive Date: 20120827
  Receipt Date: 20120816
  Transmission Date: 20120928
  Serious: Yes (Other)
  Sender: FDA-Public Use
  Company Number: JP-VERTEX PHARMACEUTICAL INC.-AE-2012-009246

PATIENT

DRUGS (7)
  1. PEGINTERFERON ALFA-2B [Concomitant]
     Indication: HEPATITIS C
     Dosage: 1.5 A?G/KG, UNK
     Route: 058
     Dates: start: 20120501
  2. LORFENAMIN [Concomitant]
     Dosage: 60 MG, PRN
     Route: 048
     Dates: start: 20120503
  3. VX-950 [Suspect]
     Indication: HEPATITIS C
     Dosage: 1500 MG, QD
     Route: 048
     Dates: start: 20120501, end: 20120723
  4. URSODIOL [Concomitant]
     Dosage: 600 MG, QD
     Route: 048
     Dates: end: 20120430
  5. RIBAVIRIN [Concomitant]
     Indication: HEPATITIS C
     Dosage: 800 MG, QD
     Route: 048
     Dates: start: 20120501, end: 20120514
  6. LANSOPRAZOLE [Concomitant]
     Route: 048
     Dates: start: 20120608
  7. RIBAVIRIN [Concomitant]
     Dosage: 400 MG, QD
     Route: 048
     Dates: start: 20120515

REACTIONS (4)
  - ANAEMIA [None]
  - PLATELET COUNT DECREASED [None]
  - RASH [None]
  - HYPERURICAEMIA [None]
